FAERS Safety Report 16912433 (Version 1)
Quarter: 2019Q4

REPORT INFORMATION
  Report Type: Spontaneous
  Country: US (occurrence: US)
  Receive Date: 20191014
  Receipt Date: 20191014
  Transmission Date: 20200122
  Serious: No
  Sender: FDA-Public Use
  Company Number: US-HTU-2019US019139

PATIENT
  Sex: Male

DRUGS (2)
  1. TARGRETIN [Concomitant]
     Active Substance: BEXAROTENE
  2. VALCHLOR [Suspect]
     Active Substance: MECHLORETHAMINE
     Indication: CUTANEOUS T-CELL LYMPHOMA
     Dosage: UNK, QD
     Route: 061
     Dates: start: 20150730

REACTIONS (1)
  - Myalgia [Unknown]
